FAERS Safety Report 4271679-2 (Version None)
Quarter: 2004Q1

REPORT INFORMATION
  Report Type: 
  Country: None (occurrence: None)
  Receive Date: 20040115
  Receipt Date: 20020913
  Transmission Date: 20041129
  Serious: Yes (Other)
  Sender: FDA-Public Use
  Company Number: US-BRISTOL-MYERS SQUIBB COMPANY-12038220

PATIENT
  Age: 50 Year
  Sex: Female

DRUGS (6)
  1. PRAVASTATIN SODIUM [Suspect]
     Dosage: LAST DOSE PRIOR TO EVENT: 03-SEP-2002
     Route: 048
     Dates: start: 20010516
  2. GATIFLOXACIN [Suspect]
     Route: 048
     Dates: start: 20010601, end: 20020903
  3. ZANTAC [Concomitant]
     Route: 048
  4. ZESTRIL [Concomitant]
     Route: 048
  5. ASPIRIN [Concomitant]
     Route: 048
  6. TOPROL-XL [Concomitant]
     Route: 048

REACTIONS (2)
  - GLYCOSYLATED HAEMOGLOBIN INCREASED [None]
  - HYPERGLYCAEMIA [None]
